FAERS Safety Report 22151383 (Version 3)
Quarter: 2023Q2

REPORT INFORMATION
  Report Type: Spontaneous
  Country: CO (occurrence: CO)
  Receive Date: 20230329
  Receipt Date: 20230615
  Transmission Date: 20230721
  Serious: Yes (Other)
  Sender: FDA-Public Use
  Company Number: CO-BAYER-2022A174964

PATIENT
  Sex: Female

DRUGS (15)
  1. EYLEA [Suspect]
     Active Substance: AFLIBERCEPT
     Indication: Product used for unknown indication
     Dosage: 2 MG  (RIGHT EYE), 40 MG/ML, SOLUTION FOR INJECTION
     Route: 031
     Dates: start: 20220110, end: 20220110
  2. EYLEA [Suspect]
     Active Substance: AFLIBERCEPT
     Dosage: UNK (RIGHT EYE), 40 MG/ML, SOLUTION FOR INJECTION
     Route: 031
     Dates: start: 20220210, end: 20220210
  3. EYLEA [Suspect]
     Active Substance: AFLIBERCEPT
     Dosage: UNK (RIGHT EYE), 40 MG/ML, SOLUTION FOR INJECTION
     Route: 031
     Dates: start: 20220310, end: 20220310
  4. EYLEA [Suspect]
     Active Substance: AFLIBERCEPT
     Dosage: UNK (RIGHT EYE), 40 MG/ML, SOLUTION FOR INJECTION
     Route: 031
     Dates: start: 20220411, end: 20220411
  5. EYLEA [Suspect]
     Active Substance: AFLIBERCEPT
     Dosage: UNK (RIGHT EYE), 40 MG/ML, SOLUTION FOR INJECTION
     Route: 031
     Dates: start: 20220510, end: 20220510
  6. EYLEA [Suspect]
     Active Substance: AFLIBERCEPT
     Dosage: UNK (RIGHT EYE), 40 MG/ML, SOLUTION FOR INJECTION
     Route: 031
     Dates: start: 20220610, end: 20220610
  7. EYLEA [Suspect]
     Active Substance: AFLIBERCEPT
     Dosage: UNK (RIGHT EYE), 40 MG/ML, SOLUTION FOR INJECTION
     Route: 031
     Dates: start: 20220711, end: 20220711
  8. EYLEA [Suspect]
     Active Substance: AFLIBERCEPT
     Dosage: UNK (RIGHT EYE), 40 MG/ML, SOLUTION FOR INJECTION
     Route: 031
     Dates: start: 20220811, end: 20220811
  9. EYLEA [Suspect]
     Active Substance: AFLIBERCEPT
     Dosage: UNK (RIGHT EYE), 40 MG/ML, SOLUTION FOR INJECTION
     Route: 031
     Dates: start: 20220909, end: 20220909
  10. EYLEA [Suspect]
     Active Substance: AFLIBERCEPT
     Dosage: UNK (RIGHT EYE), 40 MG/ML, SOLUTION FOR INJECTION
     Route: 031
     Dates: start: 20221010, end: 20221010
  11. EYLEA [Suspect]
     Active Substance: AFLIBERCEPT
     Dosage: UNK (RIGHT EYE), 40 MG/ML, SOLUTION FOR INJECTION
     Route: 031
     Dates: start: 20221111, end: 20221111
  12. EYLEA [Suspect]
     Active Substance: AFLIBERCEPT
     Dosage: UNK (RIGHT EYE), 40 MG/ML, SOLUTION FOR INJECTION
     Route: 031
     Dates: start: 20221219, end: 20221219
  13. EYLEA [Suspect]
     Active Substance: AFLIBERCEPT
     Dosage: 1 DF, ONCE; (RIGHT EYE); 40 MG/ML, SOLUTION FOR INJECTION
     Route: 031
     Dates: start: 20230130, end: 20230130
  14. EYLEA [Suspect]
     Active Substance: AFLIBERCEPT
     Dosage: 1 DF, ONCE, (RIGHT EYE ); 40 MG/ML, SOLUTION FOR INJECTION
     Route: 031
     Dates: start: 20230323, end: 20230323
  15. EYLEA [Suspect]
     Active Substance: AFLIBERCEPT
     Dosage: 1 DF, ONCE, (RIGHT EYE ); 40 MG/ML, SOLUTION FOR INJECTION
     Route: 031
     Dates: start: 20230511

REACTIONS (6)
  - Blindness transient [Unknown]
  - Inappropriate schedule of product administration [Not Recovered/Not Resolved]
  - Drug ineffective [Not Recovered/Not Resolved]
  - Visual impairment [Not Recovered/Not Resolved]
  - Headache [Not Recovered/Not Resolved]
  - Malaise [Not Recovered/Not Resolved]

NARRATIVE: CASE EVENT DATE: 20221201
